FAERS Safety Report 17209973 (Version 2)
Quarter: 2020Q1

REPORT INFORMATION
  Report Type: Spontaneous
  Country: FR (occurrence: FR)
  Receive Date: 20191227
  Receipt Date: 20200120
  Transmission Date: 20200409
  Serious: Yes (Hospitalization)
  Sender: FDA-Public Use
  Company Number: FR-MYLANLABS-2019M1127644

PATIENT
  Age: 64 Year
  Sex: Male

DRUGS (10)
  1. CLARITHROMYCIN. [Suspect]
     Active Substance: CLARITHROMYCIN
     Indication: LOWER RESPIRATORY TRACT INFECTION
     Dosage: UNK
     Route: 048
     Dates: start: 20120227, end: 201203
  2. AMLODIPINE [Concomitant]
     Active Substance: AMLODIPINE BESYLATE
     Dosage: UNK
  3. SERETIDE [Concomitant]
     Active Substance: FLUTICASONE PROPIONATE\SALMETEROL XINAFOATE
     Dosage: UNK
  4. BECLOMETASONE DIPROPIONATE [Suspect]
     Active Substance: BECLOMETHASONE DIPROPIONATE
     Indication: LOWER RESPIRATORY TRACT INFECTION
     Dosage: UNK
     Route: 055
     Dates: start: 20120227, end: 201203
  5. JANUVIA [Concomitant]
     Active Substance: SITAGLIPTIN PHOSPHATE
     Dosage: UNK
  6. BRONCHOKOD [Suspect]
     Active Substance: CARBOCYSTEINE
     Indication: LOWER RESPIRATORY TRACT INFECTION
     Dosage: UNK
     Route: 048
     Dates: start: 20120227, end: 201203
  7. MEDROL [Suspect]
     Active Substance: METHYLPREDNISOLONE
     Indication: LOWER RESPIRATORY TRACT INFECTION
     Dosage: UNK
     Route: 048
     Dates: start: 20120227, end: 201203
  8. INEXIUM                            /01479302/ [Concomitant]
     Active Substance: ESOMEPRAZOLE MAGNESIUM
     Dosage: UNK
  9. GLICLAZIDE [Concomitant]
     Active Substance: GLICLAZIDE
     Dosage: UNK
  10. LEVEMIR [Concomitant]
     Active Substance: INSULIN DETEMIR
     Dosage: UNK

REACTIONS (1)
  - Acute febrile neutrophilic dermatosis [Recovered/Resolved]

NARRATIVE: CASE EVENT DATE: 201203
